FAERS Safety Report 6882143-6 (Version None)
Quarter: 2010Q3

REPORT INFORMATION
  Report Type: 
  Country: None (occurrence: None)
  Receive Date: 20100729
  Receipt Date: 20100722
  Transmission Date: 20110219
  Serious: Yes (Hospitalization, Disabling, Other)
  Sender: FDA-Public Use
  Company Number: GB-WYE-G06195710

PATIENT
  Sex: Male
  Weight: 98.6 kg

DRUGS (9)
  1. RAPAMUNE [Suspect]
     Indication: KIDNEY TRANSPLANT REJECTION
     Route: 048
     Dates: start: 20050120, end: 20100520
  2. SIMVASTATIN [Concomitant]
     Route: 048
  3. FRUSEMIDE [Concomitant]
     Route: 048
  4. OMEPRAZOLE [Concomitant]
     Dosage: UNKNOWN
  5. SOTALOL HCL [Concomitant]
     Route: 048
  6. ASPIRIN [Concomitant]
     Route: 048
  7. ALLOPURINOL [Concomitant]
     Route: 048
  8. PREDNISOLONE [Concomitant]
     Route: 048
  9. ALFACALCIDOL [Concomitant]
     Dosage: 0.25 MCG, DAILY
     Route: 048

REACTIONS (4)
  - COUGH [None]
  - DYSPNOEA [None]
  - PNEUMONITIS [None]
  - RESPIRATORY DISORDER [None]
